FAERS Safety Report 15384996 (Version 1)
Quarter: 2018Q3

REPORT INFORMATION
  Report Type: Spontaneous
  Country: US (occurrence: US)
  Receive Date: 20180907
  Receipt Date: 20180907
  Transmission Date: 20181010
  Serious: Yes (Disabling)
  Sender: FDA-Public Use
  Company Number: None

PATIENT
  Age: 28 Year
  Sex: Female
  Weight: 123.75 kg

DRUGS (1)
  1. NEXPLANON [Suspect]
     Active Substance: ETONOGESTREL
     Dates: start: 20160606

REACTIONS (4)
  - Palpitations [None]
  - Bipolar I disorder [None]
  - Swelling [None]
  - Mood swings [None]

NARRATIVE: CASE EVENT DATE: 20170801
